FAERS Safety Report 8814466 (Version 7)
Quarter: 2013Q2

REPORT INFORMATION
  Report Type: Spontaneous
  Country: US (occurrence: US)
  Receive Date: 20120928
  Receipt Date: 20130621
  Transmission Date: 20140414
  Serious: Yes (Other)
  Sender: FDA-Public Use
  Company Number: US-PFIZER INC-2012238291

PATIENT
  Age: 44 Year
  Sex: Male
  Weight: 72.56 kg

DRUGS (9)
  1. REVATIO [Suspect]
     Indication: PULMONARY HYPERTENSION
     Dosage: 10 MG, 2X/DAY
     Route: 048
     Dates: start: 2012
  2. REVATIO [Suspect]
     Dosage: 20 MG, 3X/DAY
     Route: 048
     Dates: start: 20120315
  3. REVATIO [Suspect]
     Dosage: 20 MG, 3X/DAY
     Route: 048
     Dates: start: 201301
  4. VITAMIN D [Concomitant]
     Dosage: UNK
  5. ALLOPURINOL [Concomitant]
     Indication: GOUT
     Dosage: UNK, 1X/DAY
  6. ALLOPURINOL [Concomitant]
     Indication: GOUTY ARTHRITIS
  7. ZYLOPRIM [Concomitant]
     Dosage: 100 MG, 1X/DAY
     Route: 048
  8. BABY ASPIRIN [Concomitant]
     Dosage: 81 MG, 1X/DAY
     Route: 048
  9. ERGOCALCIFEROL [Concomitant]
     Dosage: 50,000 UNITS (ONCE A WEEK)
     Route: 048

REACTIONS (28)
  - Bone marrow oedema [Unknown]
  - Dizziness [Unknown]
  - Blood count abnormal [Unknown]
  - Haematocrit abnormal [Unknown]
  - Haemoglobin abnormal [Unknown]
  - Dyspnoea [Recovering/Resolving]
  - Exercise tolerance decreased [Unknown]
  - Dizziness [Unknown]
  - Visual acuity reduced [Unknown]
  - Presyncope [Unknown]
  - Ejection fraction decreased [Unknown]
  - Blood pressure systolic increased [Unknown]
  - Cardiac function test abnormal [Unknown]
  - Pulmonary hypertension [Unknown]
  - Migraine [Unknown]
  - Visual acuity reduced [Unknown]
  - Oedema peripheral [Unknown]
  - Abdominal discomfort [Unknown]
  - Flushing [Unknown]
  - Dry mouth [Not Recovered/Not Resolved]
  - Fatigue [Unknown]
  - Feeling hot [Unknown]
  - Drug intolerance [Unknown]
  - Oropharyngeal pain [Unknown]
  - Eye discharge [Unknown]
  - Eye pruritus [Unknown]
  - Skin discolouration [Unknown]
  - Cyanosis [Unknown]
